FAERS Safety Report 9221680 (Version 1)
Quarter: 2013Q2

REPORT INFORMATION
  Report Type: Spontaneous
  Country: FR (occurrence: FR)
  Receive Date: 20130410
  Receipt Date: 20130410
  Transmission Date: 20140414
  Serious: Yes (Hospitalization)
  Sender: FDA-Public Use
  Company Number: FR-JNJFOC-20130317541

PATIENT
  Age: 13 Year
  Sex: Male

DRUGS (3)
  1. CONCERTA LP [Suspect]
     Indication: PSYCHOMOTOR HYPERACTIVITY
     Dosage: 15 X 54 MG TABLETS
     Route: 048
     Dates: start: 20121005, end: 20121005
  2. ZINC [Suspect]
     Indication: PRODUCT USED FOR UNKNOWN INDICATION
     Route: 065
     Dates: start: 20121005
  3. OESTRADIOL [Suspect]
     Indication: PRODUCT USED FOR UNKNOWN INDICATION
     Route: 065
     Dates: start: 20121005

REACTIONS (5)
  - Tachycardia [Recovered/Resolved]
  - Abnormal behaviour [Recovered/Resolved]
  - Mydriasis [Unknown]
  - Poisoning deliberate [Unknown]
  - Overdose [Unknown]
